FAERS Safety Report 9403749 (Version 2)
Quarter: 2013Q3

REPORT INFORMATION
  Report Type: Spontaneous
  Country: AU (occurrence: AU)
  Receive Date: 20130717
  Receipt Date: 20130902
  Transmission Date: 20140515
  Serious: Yes (Hospitalization, Other)
  Sender: FDA-Public Use
  Company Number: AU-ROCHE-1248128

PATIENT
  Age: 69 Year
  Sex: Female
  Weight: 82.5 kg

DRUGS (8)
  1. XELODA [Suspect]
     Indication: BREAST CANCER METASTATIC
     Dosage: SECOND CYCLE
     Route: 048
     Dates: start: 20130529
  2. XELODA [Suspect]
     Dosage: SECOND CYCLE
     Route: 065
  3. SIMVASTATIN [Concomitant]
     Indication: BLOOD CHOLESTEROL
  4. AMILORIDE [Concomitant]
     Indication: BLOOD PRESSURE
  5. HYDROCHLOROTHIAZIDE [Concomitant]
     Indication: BLOOD PRESSURE
  6. OXYCODONE IR [Concomitant]
     Indication: PAIN
  7. OXYCODONE CR [Concomitant]
     Indication: PAIN
  8. PANADOL OSTEO [Concomitant]
     Indication: PAIN

REACTIONS (4)
  - Gastrointestinal disorder [Unknown]
  - Diarrhoea [Recovered/Resolved]
  - Palmar-plantar erythrodysaesthesia syndrome [Recovered/Resolved]
  - Urinary tract infection [Recovered/Resolved]
